FAERS Safety Report 9470716 (Version 1)
Quarter: 2013Q3

REPORT INFORMATION
  Report Type: Spontaneous
  Country: US (occurrence: US)
  Receive Date: 20130822
  Receipt Date: 20130822
  Transmission Date: 20140515
  Serious: Yes (Hospitalization)
  Sender: FDA-Public Use
  Company Number: US-PFIZER INC-2013238177

PATIENT
  Sex: Female

DRUGS (2)
  1. ZYVOX [Suspect]
     Dosage: UNK
  2. LASIX [Concomitant]
     Dosage: UNK

REACTIONS (2)
  - General physical condition abnormal [Unknown]
  - Platelet count decreased [Unknown]
